FAERS Safety Report 7964547-3 (Version None)
Quarter: 2011Q4

REPORT INFORMATION
  Report Type: 
  Country: None (occurrence: None)
  Receive Date: 20111205
  Receipt Date: 20111205
  Transmission Date: 20120403
  Serious: Yes (Other)
  Sender: FDA-Public Use
  Company Number: None

PATIENT
  Age: 47 Year
  Sex: Female

DRUGS (1)
  1. ZOLPIDEM [Suspect]
     Indication: INSOMNIA
     Dosage: 10MG 1 PO
     Route: 048
     Dates: start: 20101115, end: 20111027

REACTIONS (4)
  - INSOMNIA [None]
  - IRRITABILITY [None]
  - MALAISE [None]
  - INITIAL INSOMNIA [None]
